FAERS Safety Report 14011101 (Version 1)
Quarter: 2017Q3

REPORT INFORMATION
  Report Type: Spontaneous
  Country: US (occurrence: US)
  Receive Date: 20170925
  Receipt Date: 20170925
  Transmission Date: 20171128
  Serious: Yes (Disabling)
  Sender: FDA-Public Use
  Company Number: None

PATIENT
  Sex: Female
  Weight: 72 kg

DRUGS (9)
  1. LEVOFLOXACIN. [Suspect]
     Active Substance: LEVOFLOXACIN
     Indication: SINUSITIS
  2. ZYRTEC-D ALLERGY AND CONGESTION [Concomitant]
     Active Substance: CETIRIZINE HYDROCHLORIDE\PSEUDOEPHEDRINE HYDROCHLORIDE
  3. LYRICA [Concomitant]
     Active Substance: PREGABALIN
  4. TUMERIC [Concomitant]
     Active Substance: HERBALS\TURMERIC
  5. MAGNESIUM [Concomitant]
     Active Substance: MAGNESIUM
  6. ZINC. [Concomitant]
     Active Substance: ZINC
  7. VITAMIN E [Concomitant]
     Active Substance: .ALPHA.-TOCOPHEROL
  8. TRAMADOL. [Concomitant]
     Active Substance: TRAMADOL
  9. SYNTHROID [Concomitant]
     Active Substance: LEVOTHYROXINE SODIUM

REACTIONS (3)
  - Epicondylitis [None]
  - Pain in extremity [None]
  - Meniscus injury [None]

NARRATIVE: CASE EVENT DATE: 20160101
